FAERS Safety Report 5677115-3 (Version None)
Quarter: 2008Q1

REPORT INFORMATION
  Report Type: 
  Country: None (occurrence: None)
  Receive Date: 20080324
  Receipt Date: 20080314
  Transmission Date: 20080703
  Serious: Yes (Hospitalization, Other)
  Sender: FDA-Public Use
  Company Number: BE-JNJFOC-20080303738

PATIENT
  Age: 59 Year
  Sex: Female
  Weight: 102 kg

DRUGS (7)
  1. REMICADE [Suspect]
     Route: 042
  2. REMICADE [Suspect]
     Indication: RHEUMATOID ARTHRITIS
     Route: 042
  3. METHOTREXATE [Concomitant]
  4. CELEBREX [Concomitant]
  5. VALTRAN [Concomitant]
  6. BROMAZEPAM [Concomitant]
  7. SIPRALEXA [Concomitant]

REACTIONS (1)
  - THYROID CANCER [None]
